FAERS Safety Report 8977954 (Version 1)
Quarter: 2012Q4

REPORT INFORMATION
  Report Type: 
  Country: BR (occurrence: BR)
  Receive Date: 20121219
  Receipt Date: 20121219
  Transmission Date: 20130627
  Serious: Yes (Hospitalization)
  Sender: FDA-Public Use
  Company Number: BR-PFIZER INC-2012319723

PATIENT
  Age: 91 Year
  Sex: Male
  Weight: 56 kg

DRUGS (6)
  1. LYRICA [Suspect]
     Dosage: 75 mg, 1x/day
     Dates: start: 2007
  2. AAS [Concomitant]
     Dosage: UNK
  3. CARVEDILOL [Concomitant]
     Dosage: UNK
  4. FUROSEMIDE [Concomitant]
     Dosage: UNK
  5. MONOCORDIL [Concomitant]
     Dosage: UNK
  6. SIMVASTATIN [Concomitant]
     Dosage: UNK

REACTIONS (2)
  - Pneumonia [Unknown]
  - Pleural effusion [Unknown]
